FAERS Safety Report 7132768-8 (Version None)
Quarter: 2010Q4

REPORT INFORMATION
  Report Type: 
  Country: None (occurrence: None)
  Receive Date: 20101202
  Receipt Date: 20101122
  Transmission Date: 20110411
  Serious: No
  Sender: FDA-Public Use
  Company Number: US-PFIZER INC-2010155051

PATIENT
  Sex: Male
  Weight: 72.6 kg

DRUGS (4)
  1. LYRICA [Suspect]
     Indication: ARTHRALGIA
     Dosage: 75 MG, UNK
     Route: 048
  2. SIMVASTATIN [Concomitant]
     Indication: BLOOD PRESSURE ABNORMAL
     Dosage: 20 MG, UNK
  3. LOSARTAN [Concomitant]
     Dosage: 100 MG, UNK
  4. LOTREL [Concomitant]
     Dosage: UNK MG, UNK
     Route: 048

REACTIONS (1)
  - DRUG INEFFECTIVE [None]
